FAERS Safety Report 4314210-5 (Version None)
Quarter: 2004Q1

REPORT INFORMATION
  Report Type: 
  Country: None (occurrence: None)
  Receive Date: 20040308
  Receipt Date: 20040308
  Transmission Date: 20041129
  Serious: Yes (Hospitalization)
  Sender: FDA-Public Use
  Company Number: None

PATIENT
  Age: 45 Year
  Sex: Male
  Weight: 56.246 kg

DRUGS (5)
  1. CISPLATIN [Suspect]
     Indication: BILE DUCT CANCER
     Dosage: 124 MG D1/21D CYC INTRAVENOUS
     Route: 042
     Dates: start: 20040112, end: 20040216
  2. GEMZAR [Suspect]
     Indication: BILE DUCT CANCER
     Dosage: 1770MG D1, 8/21 D C INTRAVENOUS
     Route: 042
     Dates: start: 20040112, end: 20040216
  3. LASIX [Concomitant]
  4. ARANESP [Concomitant]
  5. COMPAZINE [Concomitant]

REACTIONS (4)
  - CATHETER RELATED INFECTION [None]
  - CHILLS [None]
  - PANCYTOPENIA [None]
  - PYREXIA [None]
